FAERS Safety Report 5428157-4 (Version None)
Quarter: 2007Q3

REPORT INFORMATION
  Report Type: 
  Country: None (occurrence: None)
  Receive Date: 20070731
  Receipt Date: 20070518
  Transmission Date: 20080115
  Serious: No
  Sender: FDA-Public Use
  Company Number: US200705005229

PATIENT
  Age: 63 Year
  Sex: Female

DRUGS (4)
  1. BYETTA [Suspect]
     Indication: TYPE 1 DIABETES MELLITUS
     Dosage: 5 UG, 2/D, SUBCUTANEOUS
     Route: 058
     Dates: start: 20070518
  2. INSULIN (INSULIN HUMAN) [Concomitant]
  3. HUMULIN R [Concomitant]
  4. ACIPHEX [Concomitant]

REACTIONS (6)
  - ABDOMINAL DISTENSION [None]
  - BLOOD GLUCOSE DECREASED [None]
  - DYSGEUSIA [None]
  - DYSPEPSIA [None]
  - HEADACHE [None]
  - NAUSEA [None]
